FAERS Safety Report 17227974 (Version 1)
Quarter: 2020Q1

REPORT INFORMATION
  Report Type: Spontaneous
  Country: FR (occurrence: FR)
  Receive Date: 20200103
  Receipt Date: 20200103
  Transmission Date: 20200409
  Serious: Yes (Other)
  Sender: FDA-Public Use
  Company Number: FR-GLAXOSMITHKLINE-FR2019236399

PATIENT
  Age: 42 Year
  Sex: Female

DRUGS (2)
  1. RADIOSELECTAN [Suspect]
     Active Substance: DIATRIZOATE MEGLUMINE\DIATRIZOATE SODIUM
     Indication: SCAN WITH CONTRAST
     Dosage: 1 DF, SINGLE
     Route: 042
     Dates: start: 20190218, end: 20190218
  2. CEFUROXIME SODIUM. [Suspect]
     Active Substance: CEFUROXIME SODIUM
     Indication: ANTIBIOTIC PROPHYLAXIS
     Dosage: 1.5 G, SINGLE
     Route: 042
     Dates: start: 20190218, end: 20190218

REACTIONS (3)
  - Hypotension [Recovered/Resolved]
  - Urticaria [Recovered/Resolved]
  - Erythema [Recovered/Resolved]

NARRATIVE: CASE EVENT DATE: 20190218
